FAERS Safety Report 5993890-2 (Version None)
Quarter: 2008Q4

REPORT INFORMATION
  Report Type: 
  Country: None (occurrence: None)
  Receive Date: 20081212
  Receipt Date: 20081105
  Transmission Date: 20090506
  Serious: No
  Sender: FDA-Public Use
  Company Number: US-ABBOTT-08P-163-0465253-00

PATIENT
  Sex: Male

DRUGS (5)
  1. HUMIRA [Suspect]
     Indication: ANKYLOSING SPONDYLITIS
     Route: 058
     Dates: start: 20080115
  2. HYDROCODONE BITARTRATE [Concomitant]
     Indication: PAIN
     Route: 048
  3. CYCLOBENZAPRINE HCL [Concomitant]
     Indication: PAIN
     Route: 048
  4. TRAZODONE HCL [Concomitant]
     Indication: DEPRESSION
     Route: 048
  5. TEMAZEPAM [Concomitant]
     Indication: INSOMNIA
     Route: 048

REACTIONS (4)
  - DRUG INEFFECTIVE [None]
  - FATIGUE [None]
  - HEADACHE [None]
  - MALAISE [None]
